FAERS Safety Report 5885049-4 (Version None)
Quarter: 2008Q3

REPORT INFORMATION
  Report Type: 
  Country: None (occurrence: None)
  Receive Date: 20080916
  Receipt Date: 20080910
  Transmission Date: 20090109
  Serious: Yes (Hospitalization, Other)
  Sender: FDA-Public Use
  Company Number: US-ABBOTT-08P-163-0475450-00

PATIENT
  Sex: Male
  Weight: 95.34 kg

DRUGS (12)
  1. NIASPAN [Suspect]
     Indication: BLOOD CHOLESTEROL INCREASED
     Route: 048
     Dates: start: 20080701
  2. NIASPAN [Suspect]
     Route: 048
     Dates: start: 20080701
  3. CLOPIDOGREL [Concomitant]
     Indication: ANTICOAGULANT THERAPY
     Route: 048
  4. DIOVAN HCT [Concomitant]
     Indication: BLOOD PRESSURE
     Route: 048
  5. TIOTROPIUM BROMIDE [Concomitant]
     Indication: LUNG DISORDER
     Route: 055
  6. METFORMIN [Concomitant]
     Indication: DIABETES MELLITUS
     Route: 048
     Dates: end: 20080911
  7. GLIPIZIDE [Concomitant]
     Indication: DIABETES MELLITUS
     Route: 048
  8. BYSTOLIC [Concomitant]
     Indication: BLOOD PRESSURE
     Route: 048
  9. ALBUTEROL SPIROS [Concomitant]
     Indication: LUNG DISORDER
  10. BECLOMETHASONE DIPROPIONATE [Concomitant]
     Indication: LUNG DISORDER
  11. FUROSEMIDE [Concomitant]
     Indication: DIURETIC THERAPY
     Dosage: 3 IN 1 WEEK OR AS NEEDED
     Route: 048
  12. ASPIRIN [Concomitant]
     Indication: CARDIAC DISORDER
     Route: 048
     Dates: start: 20080830

REACTIONS (6)
  - BACK PAIN [None]
  - BLOOD GLUCOSE INCREASED [None]
  - CHEST PAIN [None]
  - ELECTROCARDIOGRAM ABNORMAL [None]
  - FLUSHING [None]
  - VENTRICULAR EXTRASYSTOLES [None]
